FAERS Safety Report 4771495-9 (Version None)
Quarter: 2005Q3

REPORT INFORMATION
  Report Type: 
  Country: None (occurrence: None)
  Receive Date: 20050914
  Receipt Date: 20050914
  Transmission Date: 20060218
  Serious: Yes (Other)
  Sender: FDA-Public Use
  Company Number: None

PATIENT
  Age: 64 Year
  Sex: Female
  Weight: 58.0604 kg

DRUGS (7)
  1. HUMIRA [Suspect]
     Indication: RHEUMATOID ARTHRITIS
     Dosage: ONE INJECTION EVERY 14 DAYS
     Dates: start: 20050729, end: 20050903
  2. TUMS [Concomitant]
  3. ATENOLOL [Concomitant]
  4. HYDROCHLOROTHIAZIDE [Concomitant]
  5. LIPITOR [Concomitant]
  6. XANAX [Concomitant]
  7. TAGAMET [Concomitant]

REACTIONS (5)
  - CHILLS [None]
  - PRURITUS [None]
  - PYREXIA [None]
  - TREMOR [None]
  - URTICARIA [None]
